FAERS Safety Report 9419708 (Version 1)
Quarter: 2013Q3

REPORT INFORMATION
  Report Type: Spontaneous
  Country: DK (occurrence: GB)
  Receive Date: 20130725
  Receipt Date: 20130725
  Transmission Date: 20140515
  Serious: Yes (Other)
  Sender: FDA-Public Use
  Company Number: GB-FRI-1000046987

PATIENT
  Age: 61 Year
  Sex: Female
  Weight: 166 kg

DRUGS (11)
  1. CITALOPRAM [Suspect]
     Indication: DEPRESSION
     Dosage: 10 MG
     Route: 048
     Dates: start: 20130620, end: 20130622
  2. SERTRALINE [Concomitant]
     Dosage: 100 MG
     Dates: end: 201306
  3. COD LIVER OIL [Concomitant]
  4. ESTRADIOL [Concomitant]
     Dosage: 10 MG
  5. FLIXONASE AQUEOUS [Concomitant]
  6. LEVOTHYROXINE SODIUM [Concomitant]
  7. MONTELUKAST [Concomitant]
  8. OMEPRAZOLE [Concomitant]
  9. PROCHLORPERAZINE MALEATE [Concomitant]
  10. SALBUTAMOL [Concomitant]
  11. SYMBICORT [Concomitant]

REACTIONS (5)
  - Psychomotor hyperactivity [Recovering/Resolving]
  - Insomnia [Recovering/Resolving]
  - Restlessness [Unknown]
  - Speech disorder [Recovering/Resolving]
  - Fatigue [Unknown]
